FAERS Safety Report 26038608 (Version 1)
Quarter: 2025Q4

REPORT INFORMATION
  Report Type: Report from Study
  Country: CN (occurrence: CN)
  Receive Date: 20251113
  Receipt Date: 20251113
  Transmission Date: 20260117
  Serious: Yes (Other)
  Sender: ROCHE
  Company Number: CN-ROCHE-10000111100

PATIENT
  Age: 66 Year
  Sex: Female
  Weight: 47 kg

DRUGS (44)
  1. POLATUZUMAB VEDOTIN [Suspect]
     Active Substance: POLATUZUMAB VEDOTIN
     Indication: Diffuse large B-cell lymphoma
     Route: 042
     Dates: start: 20240701, end: 20240701
  2. POLATUZUMAB VEDOTIN [Suspect]
     Active Substance: POLATUZUMAB VEDOTIN
     Route: 042
     Dates: start: 20240702, end: 20240702
  3. POLATUZUMAB VEDOTIN [Suspect]
     Active Substance: POLATUZUMAB VEDOTIN
     Route: 042
     Dates: start: 20240904, end: 20240904
  4. POLATUZUMAB VEDOTIN [Suspect]
     Active Substance: POLATUZUMAB VEDOTIN
     Route: 042
     Dates: start: 20240926, end: 20240926
  5. POLATUZUMAB VEDOTIN [Suspect]
     Active Substance: POLATUZUMAB VEDOTIN
     Route: 042
     Dates: start: 20241017, end: 20241017
  6. POLATUZUMAB VEDOTIN [Suspect]
     Active Substance: POLATUZUMAB VEDOTIN
     Route: 042
     Dates: start: 20240723, end: 20240723
  7. GEMCITABINE [Suspect]
     Active Substance: GEMCITABINE
     Indication: Diffuse large B-cell lymphoma
     Route: 042
     Dates: end: 20240703
  8. GEMCITABINE [Suspect]
     Active Substance: GEMCITABINE
     Route: 042
     Dates: start: 20240724, end: 20240724
  9. GEMCITABINE [Suspect]
     Active Substance: GEMCITABINE
     Route: 042
     Dates: start: 20240926, end: 20240926
  10. GEMCITABINE [Suspect]
     Active Substance: GEMCITABINE
     Route: 042
     Dates: start: 20240904, end: 20240904
  11. OXALIPLATIN [Suspect]
     Active Substance: OXALIPLATIN
     Indication: Diffuse large B-cell lymphoma
     Route: 042
     Dates: end: 20240704
  12. OXALIPLATIN [Suspect]
     Active Substance: OXALIPLATIN
     Route: 042
     Dates: start: 20240724, end: 20240724
  13. OXALIPLATIN [Suspect]
     Active Substance: OXALIPLATIN
     Route: 042
     Dates: start: 20240926, end: 20240926
  14. OXALIPLATIN [Suspect]
     Active Substance: OXALIPLATIN
     Route: 042
     Dates: start: 20240904, end: 20240904
  15. compound chlorhexidine [Concomitant]
     Dates: start: 20240904, end: 20240905
  16. compound chlorhexidine [Concomitant]
     Dates: start: 20240926, end: 20240926
  17. compound chlorhexidine [Concomitant]
     Dates: start: 20240813, end: 20240815
  18. compound chlorhexidine [Concomitant]
     Dates: start: 20241017, end: 20241017
  19. ESOMEPRAZOLE SODIUM [Concomitant]
     Active Substance: ESOMEPRAZOLE SODIUM
     Route: 042
     Dates: start: 20240904, end: 20240904
  20. ESOMEPRAZOLE SODIUM [Concomitant]
     Active Substance: ESOMEPRAZOLE SODIUM
     Route: 042
     Dates: start: 20240926, end: 20240926
  21. ESOMEPRAZOLE SODIUM [Concomitant]
     Active Substance: ESOMEPRAZOLE SODIUM
     Route: 042
     Dates: start: 20240814, end: 20240814
  22. DIPHENHYDRAMINE HYDROCHLORIDE [Concomitant]
     Active Substance: DIPHENHYDRAMINE HYDROCHLORIDE
     Route: 048
     Dates: start: 20240904, end: 20240904
  23. DIPHENHYDRAMINE HYDROCHLORIDE [Concomitant]
     Active Substance: DIPHENHYDRAMINE HYDROCHLORIDE
     Route: 048
     Dates: start: 20240926, end: 20240926
  24. DIPHENHYDRAMINE HYDROCHLORIDE [Concomitant]
     Active Substance: DIPHENHYDRAMINE HYDROCHLORIDE
     Route: 048
     Dates: start: 20241017, end: 20241017
  25. DIPHENHYDRAMINE HYDROCHLORIDE [Concomitant]
     Active Substance: DIPHENHYDRAMINE HYDROCHLORIDE
     Route: 048
     Dates: start: 20240814, end: 20240814
  26. PROMETHAZINE HYDROCHLORIDE [Concomitant]
     Active Substance: PROMETHAZINE HYDROCHLORIDE
     Route: 030
     Dates: start: 20240814, end: 20240814
  27. TROPISETRON HYDROCHLORIDE [Concomitant]
     Active Substance: TROPISETRON HYDROCHLORIDE
     Route: 042
     Dates: start: 20240904, end: 20240904
  28. TROPISETRON HYDROCHLORIDE [Concomitant]
     Active Substance: TROPISETRON HYDROCHLORIDE
     Route: 042
     Dates: start: 20240926, end: 20240926
  29. TROPISETRON HYDROCHLORIDE [Concomitant]
     Active Substance: TROPISETRON HYDROCHLORIDE
     Route: 042
     Dates: start: 20240814, end: 20240814
  30. ANF-RHO [Concomitant]
     Active Substance: ANF-RHO
     Route: 058
     Dates: start: 20240905, end: 20240905
  31. ANF-RHO [Concomitant]
     Active Substance: ANF-RHO
     Route: 058
     Dates: start: 20240926, end: 20240926
  32. ANF-RHO [Concomitant]
     Active Substance: ANF-RHO
     Route: 058
     Dates: start: 20240816, end: 20240816
  33. POTASSIUM CITRATE [Concomitant]
     Active Substance: POTASSIUM CITRATE
     Route: 048
     Dates: start: 20240814, end: 20240815
  34. ONDANSETRON HYDROCHLORIDE [Concomitant]
     Active Substance: ONDANSETRON HYDROCHLORIDE
     Route: 048
     Dates: start: 20240815, end: 20240819
  35. POVIDONE-IODINE [Concomitant]
     Active Substance: POVIDONE-IODINE
     Dosage: MEDICATION DOSE : 1:1000 ML?OTHER ROUTE OF MEDICATION ADMIN: HIP BATH
     Dates: start: 20241017, end: 20241017
  36. POVIDONE-IODINE [Concomitant]
     Active Substance: POVIDONE-IODINE
     Dosage: MEDICATION DOSE : 1:1000 ML?OTHER ROUTE OF MEDICATION ADMIN: HIP BATH
     Dates: start: 20240926, end: 20240926
  37. POVIDONE-IODINE [Concomitant]
     Active Substance: POVIDONE-IODINE
     Dosage: MEDICATION DOSE : 1:1000 ML?OTHER ROUTE OF MEDICATION ADMIN: HIP BATH
     Dates: start: 20240813, end: 20240815
  38. POVIDONE-IODINE [Concomitant]
     Active Substance: POVIDONE-IODINE
     Dosage: MEDICATION DOSE : 1:1000 ML?OTHER ROUTE OF MEDICATION ADMIN: HIP BATH
     Dates: start: 20240904, end: 20240905
  39. HYDROTALCITE [Concomitant]
     Active Substance: HYDROTALCITE
  40. INSULIN HUMAN [Concomitant]
     Active Substance: INSULIN HUMAN
  41. SODIUM BICARBONATE [Concomitant]
     Active Substance: SODIUM BICARBONATE
  42. LIDOCAINE HYDROCHLORIDE [Concomitant]
     Active Substance: LIDOCAINE HYDROCHLORIDE
  43. LACTULOSE [Concomitant]
     Active Substance: LACTULOSE
  44. POTASSIUM CHLORIDE [Concomitant]
     Active Substance: POTASSIUM CHLORIDE
     Route: 048
     Dates: start: 20240926, end: 20240926

REACTIONS (5)
  - Lymphocyte count decreased [Recovered/Resolved]
  - Leukopenia [Recovered/Resolved]
  - Hypokalaemia [Recovered/Resolved]
  - Weight decreased [Not Recovered/Not Resolved]
  - Platelet count decreased [Not Recovered/Not Resolved]

NARRATIVE: CASE EVENT DATE: 20240702
